FAERS Safety Report 8582921-1 (Version None)
Quarter: 2012Q3

REPORT INFORMATION
  Report Type: 
  Country: None (occurrence: None)
  Receive Date: 20120727
  Receipt Date: 20120713
  Transmission Date: 20120928
  Serious: Yes (Other)
  Sender: FDA-Public Use
  Company Number: DSU-2012-05868

PATIENT

DRUGS (2)
  1. PERINDOPRIL ERBUMINE [Suspect]
     Indication: BLOOD PRESSURE
     Dosage: UNKNOWN
  2. OLMESARTAN MEDOXOMIL [Suspect]
     Indication: BLOOD PRESSURE
     Dosage: 40 MG (20 MG, BID), PER ORAL
     Route: 048

REACTIONS (1)
  - NEOPLASM MALIGNANT [None]
